FAERS Safety Report 7522297-1 (Version None)
Quarter: 2011Q2

REPORT INFORMATION
  Report Type: 
  Country: None (occurrence: None)
  Receive Date: 20110512
  Receipt Date: 20110509
  Transmission Date: 20111010
  Serious: Yes (Hospitalization)
  Sender: FDA-Public Use
  Company Number: 2011028471

PATIENT
  Age: 4 Year

DRUGS (2)
  1. ASPIRIN [Concomitant]
  2. PRIVIGEN [Suspect]
     Indication: KAWASAKI'S DISEASE
     Dosage: (INTRAVNEOUS (NOT OTHERWISE SPECIFIED))
     Route: 042
     Dates: start: 20110504

REACTIONS (2)
  - UNRESPONSIVE TO STIMULI [None]
  - ENCEPHALOPATHY [None]
